FAERS Safety Report 9239007 (Version 1)
Quarter: 2013Q2

REPORT INFORMATION
  Report Type: Spontaneous
  Country: DE (occurrence: DE)
  Receive Date: 20130418
  Receipt Date: 20130418
  Transmission Date: 20140414
  Serious: Yes (Disabling)
  Sender: FDA-Public Use
  Company Number: DE-PFIZER INC-2013115439

PATIENT
  Age: 70 Year
  Sex: Male
  Weight: 82 kg

DRUGS (1)
  1. ATORVASTATIN PFIZER [Suspect]
     Indication: HYPERCHOLESTEROLAEMIA
     Dosage: 270 MG, 1X/DAY
     Route: 048
     Dates: start: 20120822, end: 20120917

REACTIONS (2)
  - Pancreatitis [Unknown]
  - Type 2 diabetes mellitus [Unknown]
